FAERS Safety Report 7171897 (Version 2)
Quarter: 2013Q3

REPORT INFORMATION
  Report Type: Spontaneous
  Country: None (occurrence: None)
  Receive Date: 20091027
  Receipt Date: 20130715
  Transmission Date: 20140515
  Serious: Yes (Hospitalization, Other)
  Sender: FDA-Public Use
  Company Number: AUR-APL-2009-00889

PATIENT
  Age: 48 Year
  Sex: Female

DRUGS (2)
  1. ATENOLOL (ATENOLOL) [Suspect]
     Indication: PALPITATIONS
     Dates: start: 2000
  2. CHLOROQUINE [Suspect]
     Indication: SYSTEMIC LUPUS ERYTHEMATOSUS
     Dates: start: 200010

REACTIONS (14)
  - Retinogram abnormal [None]
  - Dizziness [None]
  - Loss of consciousness [None]
  - Syncope [None]
  - Convulsion [None]
  - Atrioventricular block complete [None]
  - Ventricular arrhythmia [None]
  - Hepatitis [None]
  - Liver injury [None]
  - Cardiomyopathy [None]
  - Hypokalaemia [None]
  - Visual field defect [None]
  - Drug level increased [None]
  - Cardiotoxicity [None]
